FAERS Safety Report 10839361 (Version 1)
Quarter: 2015Q1

REPORT INFORMATION
  Report Type: Spontaneous
  Country: GB (occurrence: None)
  Receive Date: 20150218
  Receipt Date: 20150218
  Transmission Date: 20150721
  Serious: Yes (Other)
  Sender: FDA-Public Use
  Company Number: FK201500749

PATIENT
  Age: 85 Year
  Sex: Female
  Weight: 68 kg

DRUGS (19)
  1. MARCAIN HEAVY [Suspect]
     Active Substance: BUPIVACAINE HYDROCHLORIDE
     Indication: EPIDURAL ANAESTHESIA
     Route: 008
  2. TEICOPLANIN [Suspect]
     Active Substance: TEICOPLANIN
     Indication: ANAESTHETIC PREMEDICATION
  3. LERCANIDIPINE [Concomitant]
     Active Substance: LERCANIDIPINE
  4. POTASSIUM CHLORIDE. [Suspect]
     Active Substance: POTASSIUM CHLORIDE
     Indication: PRODUCT USED FOR UNKNOWN INDICATION
     Dosage: 1 IN 1 HR
     Route: 041
  5. PROPOFOL. [Suspect]
     Active Substance: PROPOFOL
     Indication: EPIDURAL ANAESTHESIA
     Dosage: NOT OTHERWISE SPECIFIED
     Route: 042
  6. PREGABALIN. [Suspect]
     Active Substance: PREGABALIN
     Indication: ANAESTHETIC PREMEDICATION
  7. CHIROCAINE [Suspect]
     Active Substance: LEVOBUPIVACAINE HYDROCHLORIDE
     Indication: EPIDURAL ANAESTHESIA
     Route: 008
  8. PLASMA-LYTE 148 [Suspect]
     Active Substance: MAGNESIUM CHLORIDE\POTASSIUM CHLORIDE\SODIUM ACETATE\SODIUM CHLORIDE\SODIUM GLUCONATE
     Indication: ANAESTHETIC PREMEDICATION
     Dosage: NOT OTHERWISE SPECIFIED
     Route: 042
  9. EPHEDRINE [Suspect]
     Active Substance: EPHEDRINE
     Indication: PRODUCT USED FOR UNKNOWN INDICATION
  10. METARAMINOL [Suspect]
     Active Substance: METARAMINOL
     Indication: PRODUCT USED FOR UNKNOWN INDICATION
  11. PLASMA-LYTE 148 [Suspect]
     Active Substance: MAGNESIUM CHLORIDE\POTASSIUM CHLORIDE\SODIUM ACETATE\SODIUM CHLORIDE\SODIUM GLUCONATE
     Indication: HIP ARTHROPLASTY
     Dosage: NOT OTHERWISE SPECIFIED
     Route: 042
  12. ATENOLOL. [Concomitant]
     Active Substance: ATENOLOL
  13. CANDESARTAN [Concomitant]
     Active Substance: CANDESARTAN
  14. SODIUM LACTATE. [Suspect]
     Active Substance: SODIUM LACTATE
     Indication: PRODUCT USED FOR UNKNOWN INDICATION
     Dosage: NOT OTHERWISE SPECIFIED
     Route: 042
  15. SODIUM CHLORIDE. [Suspect]
     Active Substance: SODIUM CHLORIDE
     Indication: PRODUCT USED FOR UNKNOWN INDICATION
     Route: 041
  16. DIAMORPHINE [Suspect]
     Active Substance: DIACETYLMORPHINE
     Indication: SURGERY
     Route: 008
  17. FENTANYL. [Suspect]
     Active Substance: FENTANYL
     Indication: EPIDURAL ANAESTHESIA
     Route: 008
  18. OMEPRAZOLE. [Suspect]
     Active Substance: OMEPRAZOLE
     Indication: ANAESTHETIC PREMEDICATION
  19. GENTAMICIN. [Suspect]
     Active Substance: GENTAMICIN
     Indication: ANAESTHETIC PREMEDICATION

REACTIONS (6)
  - Unevaluable event [None]
  - Haemoglobin decreased [None]
  - Metabolic alkalosis [None]
  - Mental status changes postoperative [None]
  - Blood sodium decreased [None]
  - Confusion postoperative [None]

NARRATIVE: CASE EVENT DATE: 20150116
